FAERS Safety Report 14182819 (Version 1)
Quarter: 2017Q4

REPORT INFORMATION
  Report Type: Spontaneous
  Country: ES (occurrence: ES)
  Receive Date: 20171113
  Receipt Date: 20171113
  Transmission Date: 20180321
  Serious: Yes (Other)
  Sender: FDA-Public Use
  Company Number: ES-NOVAST LABORATORIES, LTD-ES-2017NOV000069

PATIENT
  Age: 44 Year
  Sex: Female

DRUGS (2)
  1. NAPROXEN. [Concomitant]
     Active Substance: NAPROXEN
     Indication: MIGRAINE
     Dosage: 500 MG, EVERY 12 HOURS
  2. ACETAZOLAMIDE. [Suspect]
     Active Substance: ACETAZOLAMIDE
     Indication: MIGRAINE
     Dosage: 250 MG, EVERY 8 HOURS
     Route: 048

REACTIONS (3)
  - Angle closure glaucoma [Recovering/Resolving]
  - Choroidal effusion [Recovering/Resolving]
  - Eye luxation [Recovering/Resolving]
